FAERS Safety Report 8238598-8 (Version None)
Quarter: 2012Q1

REPORT INFORMATION
  Report Type: 
  Country: None (occurrence: None)
  Receive Date: 20120323
  Receipt Date: 20120312
  Transmission Date: 20120608
  Serious: Yes (Hospitalization)
  Sender: FDA-Public Use
  Company Number: 2012SP005076

PATIENT
  Age: 56 Year
  Sex: Male
  Weight: 71 kg

DRUGS (5)
  1. REBETOL [Suspect]
     Indication: HEPATITIS C
     Dosage: 800 MG;QD;PO
     Route: 048
     Dates: start: 20120118
  2. PEG-INTRON [Suspect]
     Indication: HEPATITIS C
     Dosage: 1.5 MCG/KG QW;SC
     Route: 058
     Dates: start: 20120118
  3. TELAVIC (TELAPREVIR (INVESTIGATIONAL DRUG) [Suspect]
     Indication: HEPATITIS C
     Dosage: 2250 MG;PO
     Route: 048
     Dates: start: 20120118, end: 20120119
  4. GLYCYRON (MONOAMMONIUM GLYCYRRHIZINATE) [Concomitant]
  5. NEO-MERCAZOLE TAB [Concomitant]

REACTIONS (4)
  - DRUG ERUPTION [None]
  - ERYTHEMA [None]
  - PAIN [None]
  - PARAESTHESIA [None]
